FAERS Safety Report 9099858 (Version 1)
Quarter: 2013Q1

REPORT INFORMATION
  Report Type: Spontaneous
  Country: ZA (occurrence: ZA)
  Receive Date: 20130215
  Receipt Date: 20130215
  Transmission Date: 20140127
  Serious: Yes (Other)
  Sender: FDA-Public Use
  Company Number: PHHY2013ZA012798

PATIENT
  Age: 60 Year
  Sex: Female

DRUGS (1)
  1. TEGRETOL [Suspect]
     Indication: EPILEPSY
     Dosage: UNK
     Dates: start: 1990

REACTIONS (6)
  - Thoracic vertebral fracture [Unknown]
  - Asthma [Unknown]
  - Osteoarthritis [Unknown]
  - Influenza [Unknown]
  - Cough [Unknown]
  - Osteoporosis [Unknown]
